FAERS Safety Report 11279844 (Version 3)
Quarter: 2015Q4

REPORT INFORMATION
  Report Type: Report from Study
  Country: JP (occurrence: JP)
  Receive Date: 20150717
  Receipt Date: 20151217
  Transmission Date: 20160304
  Serious: Yes (Other)
  Sender: FDA-Public Use
  Company Number: JP-OTSUKA-2015_005464

PATIENT
  Age: 74 Year
  Sex: Male
  Weight: 59.3 kg

DRUGS (15)
  1. ALBUMINAR [Concomitant]
     Active Substance: ALBUMIN (HUMAN)
     Dosage: 25 G/DAY
     Route: 042
     Dates: start: 20150531, end: 20150602
  2. AMLODIPINE EG [Concomitant]
     Active Substance: AMLODIPINE BESYLATE
     Indication: PRODUCT USED FOR UNKNOWN INDICATION
     Dosage: 10 MG/DAY
     Route: 048
     Dates: end: 20150603
  3. URSO S [Concomitant]
     Indication: PRODUCT USED FOR UNKNOWN INDICATION
     Dosage: 600 MG/DAY
     Route: 048
     Dates: end: 20150603
  4. TOLVAPTAN [Suspect]
     Active Substance: TOLVAPTAN
     Indication: OEDEMA DUE TO HEPATIC DISEASE
     Dosage: 3.75 MG, QD
     Route: 048
     Dates: start: 20150420, end: 20150603
  5. OLMETEC [Concomitant]
     Active Substance: OLMESARTAN MEDOXOMIL
     Indication: PRODUCT USED FOR UNKNOWN INDICATION
     Dosage: 40 MG/DAY
     Route: 048
     Dates: end: 20150603
  6. ALDACTONE-A [Concomitant]
     Active Substance: SPIRONOLACTONE
     Indication: FLUID RETENTION
     Dosage: 50 MG/DAY
     Route: 048
     Dates: end: 20150603
  7. LASIX M [Concomitant]
     Active Substance: FUROSEMIDE
     Indication: FLUID RETENTION
     Dosage: 60 MG/DAY
     Route: 048
     Dates: end: 20150603
  8. GLIMICRON [Concomitant]
     Active Substance: GLICLAZIDE
     Indication: PRODUCT USED FOR UNKNOWN INDICATION
     Dosage: 40 MG/DAY
     Route: 048
     Dates: end: 20150603
  9. MIYA-BM [Concomitant]
     Active Substance: CLOSTRIDIUM BUTYRICUM SPORES STRAIN M-55
     Indication: PRODUCT USED FOR UNKNOWN INDICATION
     Dosage: 6 DF/DAY
     Route: 048
     Dates: end: 20150603
  10. ALBUMINAR [Concomitant]
     Active Substance: ALBUMIN (HUMAN)
     Dosage: 25 G/DAY
     Route: 042
     Dates: start: 20150527, end: 20150529
  11. ALBUMINAR [Concomitant]
     Active Substance: ALBUMIN (HUMAN)
     Dosage: 25 G/DAY
     Route: 042
     Dates: start: 20150511, end: 20150513
  12. ALBUMINAR [Concomitant]
     Active Substance: ALBUMIN (HUMAN)
     Dosage: 25 G/DAY
     Route: 042
     Dates: start: 20150520, end: 20150522
  13. ALBUMINAR [Concomitant]
     Active Substance: ALBUMIN (HUMAN)
     Indication: HYPOALBUMINAEMIA
     Dosage: 25 G/DAY
     Route: 042
     Dates: start: 20150505, end: 20150507
  14. DICLOFENAC NA [Concomitant]
     Active Substance: DICLOFENAC SODIUM
     Indication: PRODUCT USED FOR UNKNOWN INDICATION
     Dosage: 75 MG/DAY
     Route: 048
     Dates: end: 20150511
  15. AMINOLEBAN [Concomitant]
     Active Substance: AMINO ACIDS
     Indication: PRODUCT USED FOR UNKNOWN INDICATION
     Dosage: 500 ML/DAY
     Route: 042
     Dates: start: 20150418, end: 20150427

REACTIONS (1)
  - Enterocolitis bacterial [Recovered/Resolved]

NARRATIVE: CASE EVENT DATE: 20150505
